FAERS Safety Report 5257217-6 (Version None)
Quarter: 2007Q1

REPORT INFORMATION
  Report Type: 
  Country: None (occurrence: None)
  Receive Date: 20070307
  Receipt Date: 20070226
  Transmission Date: 20070707
  Serious: Yes (Other)
  Sender: FDA-Public Use
  Company Number: US-AMGEN-US205624

PATIENT
  Sex: Male

DRUGS (13)
  1. ARANESP [Suspect]
     Indication: ANAEMIA OF MALIGNANT DISEASE
     Route: 058
     Dates: start: 20060728, end: 20070202
  2. NEUPOGEN [Concomitant]
     Dates: start: 20060721, end: 20061111
  3. NEULASTA [Concomitant]
     Dates: start: 20060724
  4. CYCLOSPORINE [Concomitant]
     Dates: start: 20060801, end: 20070101
  5. ACYCLOVIR [Concomitant]
  6. NEXIUM [Concomitant]
  7. FOLIC ACID [Concomitant]
  8. VITAMIN CAP [Concomitant]
  9. MAGNESIUM OXIDE [Concomitant]
  10. RITUXAN [Concomitant]
     Dates: start: 20061208, end: 20061229
  11. IMMUNOGLOBULINS [Concomitant]
     Route: 042
  12. VORICONAZOLE [Concomitant]
  13. PENTAMIDINE ISETHIONATE [Concomitant]

REACTIONS (3)
  - BONE MARROW FAILURE [None]
  - THERAPEUTIC RESPONSE DECREASED [None]
  - THROMBOCYTOPENIA [None]
